FAERS Safety Report 18130382 (Version 5)
Quarter: 2021Q4

REPORT INFORMATION
  Report Type: Report from Study
  Country: GB (occurrence: None)
  Receive Date: 20200810
  Receipt Date: 20211213
  Transmission Date: 20220303
  Serious: Yes (Hospitalization)
  Sender: FDA-Public Use
  Company Number: GB-ROCHE-2652966

PATIENT
  Age: 56 Year
  Sex: Female
  Weight: 56.7 kg

DRUGS (9)
  1. IPATASERTIB [Suspect]
     Active Substance: IPATASERTIB
     Indication: HER2 negative breast cancer
     Dosage: ON 19/MAR/2020, RECEIVED MOST RECENT DOSE OF IPATASERTIB PRIOR TO SERIOUS ADVERSE EVENT
     Route: 048
     Dates: start: 20191205, end: 20200101
  2. IPATASERTIB [Suspect]
     Active Substance: IPATASERTIB
     Route: 048
     Dates: start: 20200131, end: 20200220
  3. ATEZOLIZUMAB [Suspect]
     Active Substance: ATEZOLIZUMAB
     Indication: HER2 negative breast cancer
     Dosage: ON 13/MAR/2020, RECEIVED MOST RECENT DOSE OF ATEZOLIZUMAB (840 MG) PRIOR TO SERIOUS ADVERSE EVENT.?S
     Route: 042
     Dates: start: 20191205
  4. PACLITAXEL [Suspect]
     Active Substance: PACLITAXEL
     Indication: HER2 negative breast cancer
     Dosage: DATE OF MOST RECENT DOSE OF PACLITAXEL PRIOR TO  AE ONSET: 07/FEB/2020?START TIME OF MOST RECENT DOS
     Route: 042
     Dates: start: 20191205
  5. LOPERAMIDE [Suspect]
     Active Substance: LOPERAMIDE
     Indication: HER2 negative breast cancer
     Dosage: DOSE OF LAST LOPERAMIDE ADMINISTERED PRIOR TO AE ONSET: 2 MG
     Route: 048
     Dates: start: 20191204
  6. IBUPROFEN [Concomitant]
     Active Substance: IBUPROFEN
     Indication: Musculoskeletal pain
     Route: 048
     Dates: start: 20191211
  7. CETIRIZINE [Concomitant]
     Active Substance: CETIRIZINE HYDROCHLORIDE
     Indication: Prophylaxis
     Route: 048
     Dates: start: 20191204
  8. ZINC PLUS [Concomitant]
     Indication: Oropharyngeal pain
     Route: 060
     Dates: start: 202001
  9. CAPECITABINE [Concomitant]
     Active Substance: CAPECITABINE
     Indication: Neoplasm malignant
     Dates: start: 20200327, end: 20200522

REACTIONS (1)
  - Posterior reversible encephalopathy syndrome [Recovered/Resolved with Sequelae]

NARRATIVE: CASE EVENT DATE: 20200529
